FAERS Safety Report 19912810 (Version 1)
Quarter: 2021Q4

REPORT INFORMATION
  Report Type: Spontaneous
  Country: US (occurrence: US)
  Receive Date: 20211004
  Receipt Date: 20211004
  Transmission Date: 20220304
  Serious: Yes (Hospitalization)
  Sender: FDA-Public Use
  Company Number: None

PATIENT
  Age: 63 Year
  Sex: Male

DRUGS (1)
  1. BAMLANIVIMAB\ETESEVIMAB [Suspect]
     Active Substance: BAMLANIVIMAB\ETESEVIMAB
     Indication: COVID-19
     Dosage: ?          OTHER FREQUENCY:ONCE;
     Route: 041
     Dates: start: 20210917

REACTIONS (7)
  - Unresponsive to stimuli [None]
  - Presyncope [None]
  - Feeling hot [None]
  - Dizziness [None]
  - Cardio-respiratory arrest [None]
  - Hyperhidrosis [None]
  - Blood pressure increased [None]

NARRATIVE: CASE EVENT DATE: 20210917
